FAERS Safety Report 16183347 (Version 2)
Quarter: 2019Q2

REPORT INFORMATION
  Report Type: Spontaneous
  Country: US (occurrence: US)
  Receive Date: 20190411
  Receipt Date: 20190415
  Transmission Date: 20190711
  Serious: Yes (Life-Threatening, Hospitalization)
  Sender: FDA-Public Use
  Company Number: PHHY2019US079183

PATIENT
  Age: 37 Week
  Sex: Male

DRUGS (3)
  1. DOPAMINE [Concomitant]
     Active Substance: DOPAMINE\DOPAMINE HYDROCHLORIDE
     Indication: PRODUCT USED FOR UNKNOWN INDICATION
     Dosage: UNK
     Route: 055
  2. HYDROCORTISONE. [Suspect]
     Active Substance: HYDROCORTISONE
     Indication: PRODUCT USED FOR UNKNOWN INDICATION
     Route: 055
  3. NITRIC OXIDE. [Concomitant]
     Active Substance: NITRIC OXIDE
     Indication: PRODUCT USED FOR UNKNOWN INDICATION
     Route: 055

REACTIONS (7)
  - Hypertrophic cardiomyopathy [Recovering/Resolving]
  - Sinus tachycardia [Recovering/Resolving]
  - Left ventricle outflow tract obstruction [Recovering/Resolving]
  - Ventricular hypertrophy [Recovering/Resolving]
  - Hypotension [Recovering/Resolving]
  - Condition aggravated [Recovering/Resolving]
  - Dilatation ventricular [Recovering/Resolving]
